FAERS Safety Report 15566700 (Version 1)
Quarter: 2018Q4

REPORT INFORMATION
  Report Type: Spontaneous
  Country: CA (occurrence: CA)
  Receive Date: 20181030
  Receipt Date: 20181030
  Transmission Date: 20190205
  Serious: Yes (Hospitalization, Other)
  Sender: FDA-Public Use
  Company Number: CA-PURACAP PHARMACEUTICAL LLC-2018EPC00444

PATIENT
  Age: 16 Year
  Sex: Female

DRUGS (5)
  1. PRAZOSIN. [Suspect]
     Active Substance: PRAZOSIN
     Indication: INSOMNIA
     Dosage: (2 MG; 55 TABLETS; 110 MG TOTAL)
     Route: 048
  2. PRAZOSIN. [Suspect]
     Active Substance: PRAZOSIN
     Dosage: 2 MG, 1X/DAY
     Route: 065
  3. ACETAMINOPHEN. [Suspect]
     Active Substance: ACETAMINOPHEN
     Dosage: UNK(650 MG; 72 TABLETS)
     Route: 048
  4. ACETAMINOPHEN. [Suspect]
     Active Substance: ACETAMINOPHEN
     Dosage: (500 MG; 325 TABLETS)
     Route: 048
  5. NAPROXEN. [Suspect]
     Active Substance: NAPROXEN
     Dosage: (220 MG, 250 MG TABLETS, 55 G TOTAL)
     Route: 048

REACTIONS (7)
  - Drug interaction [Recovered/Resolved]
  - Altered state of consciousness [Recovered/Resolved]
  - Hypotension [Recovered/Resolved]
  - Overdose [Recovered/Resolved]
  - Electrocardiogram QT prolonged [Recovered/Resolved]
  - Hepatic function abnormal [Recovered/Resolved]
  - Metabolic acidosis [Recovered/Resolved]
